FAERS Safety Report 14901462 (Version 2)
Quarter: 2018Q2

REPORT INFORMATION
  Report Type: Spontaneous
  Country: ZA (occurrence: ZA)
  Receive Date: 20180516
  Receipt Date: 20180531
  Transmission Date: 20180711
  Serious: Yes (Hospitalization, Other)
  Sender: FDA-Public Use
  Company Number: ZA-MYLANLABS-2018M1031395

PATIENT
  Age: 21 Year
  Sex: Female

DRUGS (3)
  1. CORTISON [Suspect]
     Active Substance: CORTISONE ACETATE
     Indication: ANTIDEPRESSANT THERAPY
  2. CORTISON [Suspect]
     Active Substance: CORTISONE ACETATE
     Indication: SINUSITIS
     Dosage: UNK
  3. CONTRAMYL XR [Suspect]
     Active Substance: METHYLPHENIDATE
     Indication: PRODUCT USED FOR UNKNOWN INDICATION
     Dosage: 54 MG, UNK

REACTIONS (9)
  - Feeling abnormal [Unknown]
  - Product quality issue [Unknown]
  - Abdominal rigidity [Unknown]
  - Fatigue [Unknown]
  - Nystagmus [Unknown]
  - Tremor [Unknown]
  - Vertigo [Unknown]
  - Seizure [Unknown]
  - Dyspnoea [Unknown]
